FAERS Safety Report 8620027 (Version 2)
Quarter: 2012Q4

REPORT INFORMATION
  Report Type: 
  Country: US (occurrence: US)
  Receive Date: 20120618
  Receipt Date: 20121228
  Transmission Date: 20130627
  Serious: Yes (Hospitalization)
  Sender: FDA-Public Use
  Company Number: US-ASTRAZENECA-2012SE38529

PATIENT
  Age: 47 Year
  Sex: Male
  Weight: 110.2 kg

DRUGS (18)
  1. SYMBICORT [Suspect]
     Indication: CHRONIC OBSTRUCTIVE PULMONARY DISEASE
     Dosage: 160/4.5 MCG, 2 PUFFS BID
     Route: 055
     Dates: start: 201112
  2. LYRICA [Concomitant]
  3. VYNASE [Concomitant]
  4. AMBIEN [Concomitant]
  5. LAMICTAL [Concomitant]
  6. XANAX [Concomitant]
  7. FLOMAX [Concomitant]
  8. DILAUDID [Concomitant]
  9. EXALGO [Concomitant]
  10. KLONOPIN [Concomitant]
  11. SEROQUEL [Concomitant]
  12. SYNTHROID [Concomitant]
  13. LANTUS [Concomitant]
  14. SOMA [Concomitant]
  15. PRISTIQ [Concomitant]
  16. ZEBATA [Concomitant]
  17. ACTIQ [Concomitant]
  18. VITAMINS [Concomitant]

REACTIONS (3)
  - Bronchitis [Recovered/Resolved]
  - Fall [Unknown]
  - Off label use [Unknown]
